FAERS Safety Report 5734035-3 (Version None)
Quarter: 2008Q2

REPORT INFORMATION
  Report Type: 
  Country: None (occurrence: None)
  Receive Date: 20080509
  Receipt Date: 20080428
  Transmission Date: 20081010
  Serious: Yes (Other)
  Sender: FDA-Public Use
  Company Number: JP-PFIZER INC-2008038221

PATIENT
  Sex: Male

DRUGS (12)
  1. EPLERENONE [Suspect]
     Dosage: TEXT:25MG QD  TDD:25MG
     Dates: start: 20080321, end: 20080403
  2. LANIRAPID [Concomitant]
     Dates: start: 20080321, end: 20080403
  3. FUROSEMIDE [Concomitant]
     Dates: start: 20080321, end: 20080403
  4. WARFARIN SODIUM [Concomitant]
     Dates: start: 20080321, end: 20080325
  5. PARIET [Concomitant]
  6. ULCERLMIN [Concomitant]
  7. ALFAROL [Concomitant]
  8. RHEUMATREX [Concomitant]
  9. PREDNISOLONE [Concomitant]
  10. ATARAX [Concomitant]
  11. EBASTEL [Concomitant]
  12. CELECOXIB [Concomitant]

REACTIONS (1)
  - WHITE BLOOD CELL COUNT DECREASED [None]
